FAERS Safety Report 6331369-9 (Version None)
Quarter: 2009Q3

REPORT INFORMATION
  Report Type: 
  Country: None (occurrence: None)
  Receive Date: 20090827
  Receipt Date: 20090821
  Transmission Date: 20100115
  Serious: Yes (Hospitalization)
  Sender: FDA-Public Use
  Company Number: US-ABBOTT-07P-163-0427414-00

PATIENT
  Sex: Female
  Weight: 90.8 kg

DRUGS (5)
  1. HUMIRA [Suspect]
     Indication: COLITIS ULCERATIVE
     Route: 058
     Dates: start: 20060101, end: 20060901
  2. HUMIRA [Suspect]
     Route: 058
     Dates: start: 20071126
  3. PREDNISONE TAB [Concomitant]
     Indication: DRUG USE FOR UNKNOWN INDICATION
  4. ZOFRAN [Concomitant]
     Indication: DRUG USE FOR UNKNOWN INDICATION
  5. DECLINED TO REPORT OTHER MEDS [Concomitant]
     Indication: DRUG USE FOR UNKNOWN INDICATION

REACTIONS (8)
  - DRUG DELIVERY SYSTEM MALFUNCTION [None]
  - INCORRECT DOSE ADMINISTERED [None]
  - INFECTED SKIN ULCER [None]
  - OROPHARYNGEAL PAIN [None]
  - RECTAL HAEMORRHAGE [None]
  - STREPTOCOCCAL INFECTION [None]
  - WOUND DRAINAGE [None]
  - WRONG TECHNIQUE IN DRUG USAGE PROCESS [None]
